FAERS Safety Report 7051178-5 (Version None)
Quarter: 2010Q4

REPORT INFORMATION
  Report Type: 
  Country: None (occurrence: None)
  Receive Date: 20101019
  Receipt Date: 20100816
  Transmission Date: 20110411
  Serious: Yes (Hospitalization)
  Sender: FDA-Public Use
  Company Number: US-BAYER-201033553NA

PATIENT
  Sex: Female

DRUGS (1)
  1. MIRENA [Suspect]
     Indication: CONTRACEPTION
     Dosage: 20 MCG/DAY
     Route: 015
     Dates: start: 20100101, end: 20100701

REACTIONS (4)
  - CYST [None]
  - INFECTED CYST [None]
  - PAIN [None]
  - POST PROCEDURAL HAEMORRHAGE [None]
